FAERS Safety Report 8246195 (Version 5)
Quarter: 2013Q1

REPORT INFORMATION
  Report Type: Spontaneous
  Country: US (occurrence: US)
  Receive Date: 20111116
  Receipt Date: 20130329
  Transmission Date: 20140127
  Serious: Yes (Other)
  Sender: FDA-Public Use
  Company Number: US-BIOGENIDEC-2011BI031252

PATIENT
  Sex: Male

DRUGS (3)
  1. AVONEX [Suspect]
     Indication: MULTIPLE SCLEROSIS
     Route: 030
     Dates: start: 20101112
  2. PHENOBARBITAL [Concomitant]
     Dates: start: 2004
  3. DEPAKOTE [Concomitant]
     Dates: start: 2004

REACTIONS (9)
  - Thrombosis [Unknown]
  - Convulsion [Recovered/Resolved]
  - Blood pressure increased [Unknown]
  - Visual impairment [Not Recovered/Not Resolved]
  - Physiotherapy [Not Recovered/Not Resolved]
  - Mobility decreased [Not Recovered/Not Resolved]
  - Memory impairment [Not Recovered/Not Resolved]
  - Tremor [Not Recovered/Not Resolved]
  - Asthenia [Not Recovered/Not Resolved]
